FAERS Safety Report 5929457-1 (Version None)
Quarter: 2008Q3

REPORT INFORMATION
  Report Type: 
  Country: None (occurrence: None)
  Receive Date: 20080924
  Receipt Date: 20080730
  Transmission Date: 20090109
  Serious: Yes (Other)
  Sender: FDA-Public Use
  Company Number: A03200803039

PATIENT
  Age: 87 Year
  Sex: Female
  Weight: 54.3409 kg

DRUGS (9)
  1. AMBIEN CR [Suspect]
     Indication: INSOMNIA
     Dosage: 6.25 MG HS - ORAL
     Route: 048
     Dates: start: 20080729, end: 20080729
  2. DIPHENOXYLATE HYDROCHLORIDE + ATROPINE SULFATE [Concomitant]
  3. ATENOLOL [Concomitant]
  4. LEVOTHYROXINE SODIUM [Concomitant]
  5. VITAMIN D [Concomitant]
  6. OPIUM TINCTURE [Concomitant]
  7. ESOMEPRAZOLE MAGNESIUM [Concomitant]
  8. MIRTAZAPINE [Concomitant]
  9. ACIDOPHILUS [Concomitant]

REACTIONS (2)
  - DRUG INEFFECTIVE [None]
  - HALLUCINATION, VISUAL [None]
